FAERS Safety Report 12249742 (Version 2)
Quarter: 2017Q1

REPORT INFORMATION
  Report Type: Report from Study
  Country: US (occurrence: US)
  Receive Date: 20160408
  Receipt Date: 20170104
  Transmission Date: 20170428
  Serious: Yes (Hospitalization)
  Sender: FDA-Public Use
  Company Number: US-ACTELION-A-NJ2016-134143

PATIENT
  Age: 61 Year
  Sex: Male

DRUGS (1)
  1. TRACLEER [Suspect]
     Active Substance: BOSENTAN
     Indication: PULMONARY ARTERIAL HYPERTENSION
     Dosage: 125 MG, BID
     Route: 048
     Dates: start: 20141229

REACTIONS (5)
  - Hernia repair [Unknown]
  - Vomiting [Unknown]
  - Umbilical hernia [Unknown]
  - Nausea [Unknown]
  - Pancreatitis [Unknown]
